FAERS Safety Report 13664507 (Version 2)
Quarter: 2017Q4

REPORT INFORMATION
  Report Type: Report from Study
  Country: US (occurrence: US)
  Receive Date: 20170619
  Receipt Date: 20171120
  Transmission Date: 20180320
  Serious: Yes (Death)
  Sender: FDA-Public Use
  Company Number: US-PFIZER INC-2017263552

PATIENT

DRUGS (3)
  1. ETOPOSIDE. [Suspect]
     Active Substance: ETOPOSIDE
     Indication: SMALL CELL LUNG CANCER EXTENSIVE STAGE
     Dosage: 100 MG/M2, ON DAYS 1, 2 AND 3 OF EACH 21-DAY CYCLE
     Route: 042
  2. RILOTUMUMAB [Suspect]
     Active Substance: RILOTUMUMAB
     Indication: SMALL CELL LUNG CANCER
     Dosage: 15 MG/KG, 60-MIN INFUSIONS, ON C1D2 AND ON D1 OF SUBSEQUENT CYCLES (21-DAY CYCLES)
     Route: 042
  3. CARBOPLATIN. [Suspect]
     Active Substance: CARBOPLATIN
     Indication: SMALL CELL LUNG CANCER EXTENSIVE STAGE
     Dosage: AREA UNDER THE CURVE, 5 MG/ML X MIN OVER 30 MINUTES, ON DAY 1 OF EACH 21-DAY CYCLE
     Route: 042

REACTIONS (1)
  - Cardiac arrest [Fatal]
